FAERS Safety Report 4894811-6 (Version None)
Quarter: 2006Q1

REPORT INFORMATION
  Report Type: 
  Country: None (occurrence: None)
  Receive Date: 20060130
  Receipt Date: 20060120
  Transmission Date: 20060701
  Serious: Yes (Hospitalization)
  Sender: FDA-Public Use
  Company Number: HR-NOVOPROD-250303

PATIENT
  Age: 46 Year
  Sex: Male
  Weight: 70 kg

DRUGS (5)
  1. NOVORAPID [Suspect]
     Indication: INSULIN-REQUIRING TYPE II DIABETES MELLITUS
     Dosage: 60 IU, QD
     Route: 058
     Dates: start: 20051210, end: 20051217
  2. INSULATARD NPH HUMAN [Concomitant]
     Indication: INSULIN-REQUIRING TYPE II DIABETES MELLITUS
     Dosage: 20 IU, QD
     Route: 058
  3. IRUMED [Concomitant]
     Dosage: 5 MG, UNK
     Route: 048
  4. TAGREN [Concomitant]
     Route: 048
  5. ANDOL [Concomitant]
     Dosage: 100 MG, QD
     Route: 048

REACTIONS (1)
  - VASCULITIS [None]
